FAERS Safety Report 9956310 (Version 1)
Quarter: 2014Q1

REPORT INFORMATION
  Report Type: Spontaneous
  Country: US (occurrence: US)
  Receive Date: 20140304
  Receipt Date: 20140304
  Transmission Date: 20141002
  Serious: No
  Sender: FDA-Public Use
  Company Number: US-ABBVIE-13P-163-1090771-00

PATIENT
  Sex: 0

DRUGS (6)
  1. HUMIRA [Suspect]
     Indication: PSORIATIC ARTHROPATHY
  2. HUMIRA [Suspect]
     Indication: PSORIASIS
  3. MTX [Concomitant]
     Indication: PSORIATIC ARTHROPATHY
  4. MTX [Concomitant]
     Indication: PSORIASIS
  5. FOLIC [Concomitant]
     Indication: PSORIATIC ARTHROPATHY
  6. FOLIC [Concomitant]
     Indication: PSORIASIS

REACTIONS (3)
  - Drug ineffective [Unknown]
  - Psoriatic arthropathy [Unknown]
  - Psoriasis [Unknown]
